FAERS Safety Report 8536169-7 (Version None)
Quarter: 2012Q3

REPORT INFORMATION
  Report Type: 
  Country: None (occurrence: None)
  Receive Date: 20120725
  Receipt Date: 20120711
  Transmission Date: 20120928
  Serious: Yes (Hospitalization)
  Sender: FDA-Public Use
  Company Number: JP-ELI_LILLY_AND_COMPANY-JP201206007570

PATIENT
  Sex: Female
  Weight: 45 kg

DRUGS (7)
  1. ZETIA [Concomitant]
     Dosage: 10 MG, QD
     Route: 048
  2. NEXIUM [Concomitant]
     Dosage: 20 MG, QD
     Route: 048
  3. AMLODIPINE                         /00972402/ [Concomitant]
     Dosage: 2.5 MG, QD
     Route: 048
  4. CYMBALTA [Suspect]
     Indication: DIABETIC NEUROPATHY
     Dosage: 20 MG, QD
     Route: 048
     Dates: start: 20120608, end: 20120611
  5. AMARYL [Concomitant]
     Dosage: 1 MG, QD
     Route: 048
  6. BASEN [Concomitant]
     Dosage: 0.2 MG, TID
     Route: 048
  7. OLMESARTAN MEDOXOMIL [Concomitant]
     Dosage: 20 MG, QD
     Route: 048

REACTIONS (2)
  - INAPPROPRIATE ANTIDIURETIC HORMONE SECRETION [None]
  - NEPHROTIC SYNDROME [None]
